FAERS Safety Report 8482578-4 (Version None)
Quarter: 2012Q3

REPORT INFORMATION
  Report Type: 
  Country: None (occurrence: None)
  Receive Date: 20120702
  Receipt Date: 20120619
  Transmission Date: 20120928
  Serious: Yes (Disabling)
  Sender: FDA-Public Use
  Company Number: US-MERCK-1206USA03232

PATIENT
  Sex: Male

DRUGS (2)
  1. SIMVASTATIN [Suspect]
     Route: 065
     Dates: start: 20090801, end: 20100301
  2. ZOCOR [Suspect]
     Route: 048
     Dates: start: 20090801, end: 20100301

REACTIONS (2)
  - PAIN [None]
  - ADVERSE EVENT [None]
